FAERS Safety Report 9814700 (Version 1)
Quarter: 2014Q1

REPORT INFORMATION
  Report Type: Spontaneous
  Country: GB (occurrence: GB)
  Receive Date: 20140113
  Receipt Date: 20140113
  Transmission Date: 20141002
  Serious: Yes (Other)
  Sender: FDA-Public Use
  Company Number: PHHY2014GB002398

PATIENT
  Sex: 0

DRUGS (1)
  1. TRAMADOL [Suspect]
     Dosage: 100 MG, QID

REACTIONS (6)
  - Painful defaecation [Unknown]
  - Faeces hard [Unknown]
  - Faecaloma [Unknown]
  - Haematochezia [Unknown]
  - Pruritus [Unknown]
  - Rash [Unknown]
